FAERS Safety Report 23532103 (Version 3)
Quarter: 2024Q2

REPORT INFORMATION
  Report Type: Spontaneous
  Country: GB (occurrence: GB)
  Receive Date: 20240216
  Receipt Date: 20240404
  Transmission Date: 20240716
  Serious: Yes (Hospitalization, Other)
  Sender: FDA-Public Use
  Company Number: GB-ABBVIE-5640849

PATIENT
  Age: 72 Year
  Sex: Female

DRUGS (10)
  1. VENETOCLAX [Suspect]
     Active Substance: VENETOCLAX
     Indication: Acute myeloid leukaemia
     Route: 048
     Dates: start: 20240226
  2. VENETOCLAX [Suspect]
     Active Substance: VENETOCLAX
     Indication: Acute myeloid leukaemia
     Route: 048
     Dates: start: 20240108, end: 20240204
  3. ASPIRIN [Concomitant]
     Active Substance: ASPIRIN
     Indication: Transient ischaemic attack
     Route: 048
     Dates: start: 20060606
  4. SULFAMETHOXAZOLE\TRIMETHOPRIM [Concomitant]
     Active Substance: SULFAMETHOXAZOLE\TRIMETHOPRIM
     Indication: Prophylaxis
     Dosage: BD, MON WED, FRIDAY
     Route: 048
     Dates: start: 20240108
  5. ACYCLOVIR [Concomitant]
     Active Substance: ACYCLOVIR
     Indication: Prophylaxis
     Route: 048
     Dates: start: 20240108
  6. AMLODIPINE [Concomitant]
     Active Substance: AMLODIPINE BESYLATE
     Indication: Hypertension
     Route: 048
     Dates: start: 20150626
  7. POSACONAZOLE [Concomitant]
     Active Substance: POSACONAZOLE
     Indication: Product used for unknown indication
     Route: 048
     Dates: start: 20240112
  8. AZACITIDINE [Suspect]
     Active Substance: AZACITIDINE
     Indication: Acute myeloid leukaemia
     Dosage: DAILY ON DAYS 1,2,3,4, 5, 8,9
     Route: 058
     Dates: start: 20240226
  9. AZACITIDINE [Suspect]
     Active Substance: AZACITIDINE
     Indication: Acute myeloid leukaemia
     Dosage: DAILY ON DAYS 1,2,3,4, 5, 8,9
     Route: 058
     Dates: start: 20240108, end: 20240116
  10. ATORVASTATIN [Concomitant]
     Active Substance: ATORVASTATIN
     Indication: Prophylaxis
     Route: 048
     Dates: start: 20201130

REACTIONS (14)
  - Pancreatitis acute [Recovered/Resolved with Sequelae]
  - Neutropenia [Recovered/Resolved]
  - Hepatic steatosis [Unknown]
  - Acute myeloid leukaemia [Recovered/Resolved]
  - Abdominal pain [Recovered/Resolved with Sequelae]
  - Gastric volvulus [Unknown]
  - Abdominal rigidity [Recovered/Resolved]
  - Hepatic cyst [Unknown]
  - Abdominal tenderness [Recovered/Resolved]
  - Aortic aneurysm [Unknown]
  - Amylase increased [Recovered/Resolved]
  - Renal disorder [Unknown]
  - Pancreatitis relapsing [Unknown]
  - Gastric dilatation [Unknown]

NARRATIVE: CASE EVENT DATE: 20240101
